FAERS Safety Report 8173243-1 (Version None)
Quarter: 2012Q1

REPORT INFORMATION
  Report Type: 
  Country: None (occurrence: None)
  Receive Date: 20120229
  Receipt Date: 20111207
  Transmission Date: 20120608
  Serious: No
  Sender: FDA-Public Use
  Company Number: US-GLAXOSMITHKLINE-A0957777A

PATIENT
  Sex: Female

DRUGS (4)
  1. GSK AUTOINJECTOR [Suspect]
     Indication: MIGRAINE
     Route: 058
  2. IMITREX [Suspect]
     Route: 048
  3. IMITREX [Suspect]
     Indication: MIGRAINE
     Route: 058
  4. IMITREX [Suspect]
     Route: 045

REACTIONS (3)
  - HEADACHE [None]
  - PRODUCT QUALITY ISSUE [None]
  - THERAPEUTIC RESPONSE DECREASED [None]
